FAERS Safety Report 4967130-7 (Version None)
Quarter: 2006Q2

REPORT INFORMATION
  Report Type: 
  Country: None (occurrence: None)
  Receive Date: 20060403
  Receipt Date: 20050613
  Transmission Date: 20061013
  Serious: Yes (Death)
  Sender: FDA-Public Use
  Company Number: 23100223

PATIENT
  Age: 83 Year
  Sex: Male

DRUGS (15)
  1. NOVASTAN [Suspect]
     Dosage: 60 MG QD IV
     Route: 042
     Dates: start: 20050409, end: 20050413
  2. RADICUT (EDARAVONE) [Suspect]
     Dosage: 30 MG BID IV
     Route: 042
     Dates: start: 20050406, end: 20050407
  3. BLOPRESS (CANDESARTAN CILEXETIL) [Suspect]
  4. ZOLPIDEM TARTRATE [Suspect]
  5. MOBIC [Suspect]
  6. SEROQUEL [Suspect]
     Dosage: 25 MG QD PO
     Route: 048
     Dates: start: 20050407, end: 20050418
  7. LOXONIN [Suspect]
     Dosage: 60 MG BID PO
     Route: 048
     Dates: start: 20050414, end: 20050418
  8. GLUCOSE [Concomitant]
  9. SOLITA-T NO. 3 [Concomitant]
  10. LANIRAPID [Concomitant]
  11. ISOSORBIDE MONONITRATE [Concomitant]
  12. ACETYLSALICYLIC ACID SRT [Concomitant]
  13. WARFARIN [Concomitant]
  14. FAMOTIDINE [Concomitant]
  15. LASIX [Concomitant]

REACTIONS (7)
  - BLOOD PRESSURE DECREASED [None]
  - CATHETER SEPSIS [None]
  - CHOLESTASIS [None]
  - DEPRESSED LEVEL OF CONSCIOUSNESS [None]
  - PNEUMONIA [None]
  - RESPIRATORY ARREST [None]
  - SKIN INFLAMMATION [None]
